FAERS Safety Report 8033503-1 (Version None)
Quarter: 2012Q1

REPORT INFORMATION
  Report Type: 
  Country: None (occurrence: None)
  Receive Date: 20120110
  Receipt Date: 20120104
  Transmission Date: 20120608
  Serious: Yes (Hospitalization, Other)
  Sender: FDA-Public Use
  Company Number: US-AMGEN-USASP2011063460

PATIENT
  Age: 42 Year
  Sex: Female

DRUGS (1)
  1. ENBREL [Suspect]
     Indication: RHEUMATOID ARTHRITIS
     Dosage: 50 MG, QWK
     Dates: start: 20060101

REACTIONS (8)
  - SUTURE RUPTURE [None]
  - POST PROCEDURAL HAEMORRHAGE [None]
  - BACK PAIN [None]
  - ANKLE FRACTURE [None]
  - FOOT OPERATION [None]
  - INTERVERTEBRAL DISC COMPRESSION [None]
  - SURGERY [None]
  - ACCIDENT [None]
